FAERS Safety Report 24354367 (Version 1)
Quarter: 2024Q3

REPORT INFORMATION
  Report Type: Spontaneous
  Country: US (occurrence: US)
  Receive Date: 20240923
  Receipt Date: 20240923
  Transmission Date: 20241017
  Serious: No
  Sender: BRISTOL MYERS SQUIBB
  Company Number: US-BRISTOL-MYERS SQUIBB COMPANY-2024-149947

PATIENT
  Sex: Male

DRUGS (1)
  1. SOTYKTU [Suspect]
     Active Substance: DEUCRAVACITINIB
     Indication: Psoriasis
     Dates: start: 2024

REACTIONS (4)
  - Aphthous ulcer [Unknown]
  - Diarrhoea [Unknown]
  - Dysphagia [Unknown]
  - Odynophagia [Unknown]

NARRATIVE: CASE EVENT DATE: 20240101
